FAERS Safety Report 7700455-0 (Version None)
Quarter: 2011Q3

REPORT INFORMATION
  Report Type: 
  Country: None (occurrence: None)
  Receive Date: 20110817
  Receipt Date: 20110803
  Transmission Date: 20111222
  Serious: Yes (Hospitalization)
  Sender: FDA-Public Use
  Company Number: TPG2011A02005

PATIENT
  Age: 62 Year
  Sex: Male

DRUGS (6)
  1. ACTOS [Suspect]
     Indication: DIABETES MELLITUS
     Dosage: 30 MG (30 MG,1 IN 1 D)
     Route: 048
     Dates: start: 20100506, end: 20110803
  2. METOPROLOL SUCCINATE [Concomitant]
  3. ALLOPURINOL [Concomitant]
  4. ATACAND (CANESARTAN CILEXETIL) [Concomitant]
  5. AMLODIPINE [Concomitant]
  6. SIMVASTATIN [Concomitant]

REACTIONS (1)
  - BLADDER CANCER [None]
